FAERS Safety Report 4430596-5 (Version None)
Quarter: 2004Q3

REPORT INFORMATION
  Report Type: 
  Country: None (occurrence: None)
  Receive Date: 20040819
  Receipt Date: 20040819
  Transmission Date: 20050211
  Serious: Yes (Hospitalization)
  Sender: FDA-Public Use
  Company Number: None

PATIENT
  Sex: Male
  Weight: 88.4514 kg

DRUGS (7)
  1. ASPIRIN [Suspect]
     Dosage: POSSIBLY 500MG 2BID
  2. ATENOLOL [Concomitant]
  3. FOSINOPRIL SODIUM [Concomitant]
  4. GEMFIBROZIL [Concomitant]
  5. HYDROCHLOROTHIAZIDE [Concomitant]
  6. RANITIDINE [Concomitant]
  7. SIMVASTATIN [Concomitant]

REACTIONS (3)
  - DUODENAL ULCER [None]
  - MEDICATION ERROR [None]
  - UPPER GASTROINTESTINAL HAEMORRHAGE [None]
